FAERS Safety Report 9686832 (Version 2)
Quarter: 2013Q4

REPORT INFORMATION
  Report Type: Spontaneous
  Country: VE (occurrence: VE)
  Receive Date: 20131113
  Receipt Date: 20131126
  Transmission Date: 20140711
  Serious: Yes (Death, Other)
  Sender: FDA-Public Use
  Company Number: VE-PFIZER INC-2013323416

PATIENT
  Age: 72 Year
  Sex: Female

DRUGS (1)
  1. LIPITOR [Suspect]
     Dosage: UNK MG, UNK
     Route: 048
     Dates: start: 201310

REACTIONS (3)
  - Respiratory arrest [Fatal]
  - Metastasis [Not Recovered/Not Resolved]
  - Swelling [Not Recovered/Not Resolved]
